FAERS Safety Report 5574557-1 (Version None)
Quarter: 2007Q4

REPORT INFORMATION
  Report Type: 
  Country: None (occurrence: None)
  Receive Date: 20071130
  Receipt Date: 20070918
  Transmission Date: 20080405
  Serious: Yes (Other)
  Sender: FDA-Public Use
  Company Number: PHEH2007US07962

PATIENT
  Age: 72 Year
  Sex: Female

DRUGS (3)
  1. TEKTURNA [Suspect]
     Indication: HYPERTENSION
     Dosage: 150 MG, QD, ORAL
     Route: 048
     Dates: start: 20070328, end: 20070520
  2. SYNTHROID [Concomitant]
  3. DARVOCET-N 100 [Concomitant]

REACTIONS (3)
  - OEDEMA [None]
  - PYREXIA [None]
  - RASH [None]
